FAERS Safety Report 9118297 (Version 1)
Quarter: 2013Q1

REPORT INFORMATION
  Report Type: Spontaneous
  Country: US (occurrence: None)
  Receive Date: 20130221
  Receipt Date: 20130221
  Transmission Date: 20140127
  Serious: Yes (Other)
  Sender: FDA-Public Use
  Company Number: None

PATIENT
  Sex: 0

DRUGS (1)
  1. DIGOXIN [Suspect]
     Indication: HEART RATE IRREGULAR

REACTIONS (5)
  - Glaucoma [None]
  - Eye disorder [None]
  - Decreased appetite [None]
  - Weight decreased [None]
  - Pruritus [None]
